FAERS Safety Report 16109031 (Version 1)
Quarter: 2019Q1

REPORT INFORMATION
  Report Type: Spontaneous
  Country: US (occurrence: US)
  Receive Date: 20190323
  Receipt Date: 20190323
  Transmission Date: 20190418
  Serious: No
  Sender: FDA-Public Use
  Company Number: US-THERAPEUTICSMD-2019TMD00057

PATIENT
  Age: 71 Year
  Sex: Female
  Weight: 54.42 kg

DRUGS (5)
  1. IMVEXXY [Suspect]
     Active Substance: ESTRADIOL
     Indication: HOT FLUSH
     Dosage: 4 ?G, 2X/WEEK IN MORNING
     Route: 067
     Dates: start: 201901, end: 201901
  2. IMVEXXY [Suspect]
     Active Substance: ESTRADIOL
     Dosage: 4 ?G, 2X/WEEK AT NIGHT
     Route: 067
     Dates: start: 201901
  3. SINGULAIR [Concomitant]
     Active Substance: MONTELUKAST SODIUM
  4. TOFRANIL [Concomitant]
     Active Substance: IMIPRAMINE HYDROCHLORIDE
  5. ELMIRON [Concomitant]
     Active Substance: PENTOSAN POLYSULFATE SODIUM

REACTIONS (4)
  - Product residue present [Recovering/Resolving]
  - Off label use [Not Recovered/Not Resolved]
  - Hot flush [Unknown]
  - Drug ineffective for unapproved indication [Not Recovered/Not Resolved]

NARRATIVE: CASE EVENT DATE: 201901
